FAERS Safety Report 23541366 (Version 1)
Quarter: 2024Q1

REPORT INFORMATION
  Report Type: Spontaneous
  Country: US (occurrence: US)
  Receive Date: 20240219
  Receipt Date: 20240219
  Transmission Date: 20240410
  Serious: Yes (Other)
  Sender: FDA-Public Use
  Company Number: US-BRISTOL-MYERS SQUIBB COMPANY-2024-025840

PATIENT
  Age: 74 Year
  Sex: Female

DRUGS (11)
  1. LENALIDOMIDE [Suspect]
     Active Substance: LENALIDOMIDE
     Indication: Plasma cell myeloma
     Dosage: TAKE 1 CAPSULE (15MG) BY MOUTH DAILY FOR 21 DAYS, THEN TAKE 7 DAYS OFF
     Route: 048
  2. CALCIUM\CHOLECALCIFEROL [Concomitant]
     Active Substance: CALCIUM\CHOLECALCIFEROL
  3. HYDROCHLOROTHIAZIDE [Concomitant]
     Active Substance: HYDROCHLOROTHIAZIDE
  4. PROLIA [Concomitant]
     Active Substance: DENOSUMAB
  5. ASPIRIN [Concomitant]
     Active Substance: ASPIRIN
  6. LYRICA [Concomitant]
     Active Substance: PREGABALIN
  7. ACYCLOVIR [Concomitant]
     Active Substance: ACYCLOVIR
  8. AMLODIPINE BESYLATE [Concomitant]
     Active Substance: AMLODIPINE BESYLATE
  9. PANTOPRAZOLE SODIUM [Concomitant]
     Active Substance: PANTOPRAZOLE SODIUM
  10. POTASSIUM [Concomitant]
     Active Substance: POTASSIUM
  11. AMITRIPTYLINE HYDROCHLORIDE [Concomitant]
     Active Substance: AMITRIPTYLINE HYDROCHLORIDE

REACTIONS (2)
  - Fall [Unknown]
  - Traumatic intracranial haemorrhage [Unknown]
